FAERS Safety Report 11242600 (Version 1)
Quarter: 2015Q3

REPORT INFORMATION
  Report Type: Spontaneous
  Country: DE (occurrence: None)
  Receive Date: 20150702
  Receipt Date: 20150702
  Transmission Date: 20151125
  Serious: Yes (Other)
  Sender: FDA-Public Use
  Company Number: HRA-CDB20150182

PATIENT
  Sex: Female
  Weight: 61 kg

DRUGS (1)
  1. ELLAONE 30 MG TABLETS (ELLAONE) (ULIPRISTAL ACETATE) [Suspect]
     Active Substance: ULIPRISTAL ACETATE
     Indication: POST COITAL CONTRACEPTION
     Dates: start: 20150523

REACTIONS (4)
  - Exposure during pregnancy [None]
  - Maternal drugs affecting foetus [None]
  - Pregnancy after post coital contraception [None]
  - Foetal death [None]

NARRATIVE: CASE EVENT DATE: 2015
